FAERS Safety Report 5638574-5 (Version None)
Quarter: 2008Q1

REPORT INFORMATION
  Report Type: 
  Country: None (occurrence: None)
  Receive Date: 20080226
  Receipt Date: 20070515
  Transmission Date: 20080703
  Serious: No
  Sender: FDA-Public Use
  Company Number: A0651429A

PATIENT
  Sex: Female

DRUGS (6)
  1. IMITREX [Suspect]
     Indication: MIGRAINE
     Route: 058
     Dates: start: 20061001
  2. TOPAMAX [Concomitant]
  3. DARVOCET [Concomitant]
  4. VALIUM [Concomitant]
  5. BIRTH CONTROL PILLS [Concomitant]
  6. ZANAFLEX [Concomitant]

REACTIONS (1)
  - DRUG INEFFECTIVE [None]
